FAERS Safety Report 7442200-2 (Version None)
Quarter: 2011Q2

REPORT INFORMATION
  Report Type: 
  Country: None (occurrence: None)
  Receive Date: 20110428
  Receipt Date: 20110418
  Transmission Date: 20111010
  Serious: Yes (Hospitalization, Other)
  Sender: FDA-Public Use
  Company Number: AT-MPIJNJ-2011-01653

PATIENT

DRUGS (4)
  1. FORTECORTIN                        /00016001/ [Suspect]
     Indication: MULTIPLE MYELOMA
     Dosage: 20 MG, UNK
     Route: 048
     Dates: start: 20100416, end: 20100721
  2. ZOMETA [Concomitant]
     Dosage: 4 MG, UNK
     Route: 042
     Dates: start: 20100419
  3. VELCADE [Suspect]
     Indication: MULTIPLE MYELOMA
     Dosage: 1.3 MG/M2, UNK
     Route: 042
     Dates: start: 20100416, end: 20100809
  4. DEPOCYT [Concomitant]
     Indication: PROPHYLAXIS
     Dosage: 50 MG, UNK
     Route: 037
     Dates: start: 20100416, end: 20100721

REACTIONS (5)
  - NEUROPATHY PERIPHERAL [None]
  - DIARRHOEA [None]
  - EMBOLISM VENOUS [None]
  - DEHYDRATION [None]
  - LUNG DISORDER [None]
